FAERS Safety Report 10912559 (Version 3)
Quarter: 2015Q4

REPORT INFORMATION
  Report Type: Report from Study
  Country: US (occurrence: US)
  Receive Date: 20150313
  Receipt Date: 20151218
  Transmission Date: 20160304
  Serious: Yes (Death, Hospitalization, Other)
  Sender: FDA-Public Use
  Company Number: US-SA-2015SA031481

PATIENT
  Age: 72 Year
  Sex: Female

DRUGS (1)
  1. CEREZYME [Suspect]
     Active Substance: IMIGLUCERASE
     Indication: GAUCHER^S DISEASE TYPE I
     Dosage: DOSE:3200 UNIT(S)
     Route: 041
     Dates: start: 20080601, end: 20150403

REACTIONS (4)
  - Seizure [Not Recovered/Not Resolved]
  - Parkinson^s disease [Unknown]
  - Dementia Alzheimer^s type [Not Recovered/Not Resolved]
  - Death [Fatal]

NARRATIVE: CASE EVENT DATE: 20150304
